FAERS Safety Report 4367222-X (Version None)
Quarter: 2004Q2

REPORT INFORMATION
  Report Type: 
  Country: None (occurrence: None)
  Receive Date: 20040526
  Receipt Date: 20040512
  Transmission Date: 20050107
  Serious: Yes (Other)
  Sender: FDA-Public Use
  Company Number: S04-USA-02795-01

PATIENT
  Age: 7 Year

DRUGS (1)
  1. LEXAPRO [Suspect]

REACTIONS (1)
  - MANIA [None]
